FAERS Safety Report 22536713 (Version 1)
Quarter: 2023Q2

REPORT INFORMATION
  Report Type: Spontaneous
  Country: CN (occurrence: CN)
  Receive Date: 20230608
  Receipt Date: 20230608
  Transmission Date: 20230721
  Serious: Yes (Other)
  Sender: FDA-Public Use
  Company Number: CN-SUN PHARMACEUTICAL INDUSTRIES LTD-2023R1-393411

PATIENT
  Age: 60 Year
  Sex: Male

DRUGS (2)
  1. ASPIRIN [Suspect]
     Active Substance: ASPIRIN
     Indication: Cerebral infarction
     Dosage: UNK
     Route: 065
  2. CLOPIDOGREL [Suspect]
     Active Substance: CLOPIDOGREL BISULFATE
     Indication: Cerebral infarction
     Dosage: UNK
     Route: 065

REACTIONS (1)
  - Drug ineffective [Unknown]
